FAERS Safety Report 12627496 (Version 1)
Quarter: 2016Q3

REPORT INFORMATION
  Report Type: Report from Study
  Country: BR (occurrence: BR)
  Receive Date: 20160805
  Receipt Date: 20160805
  Transmission Date: 20161109
  Serious: Yes (Other)
  Sender: FDA-Public Use
  Company Number: BR-ABBVIE-16K-020-1692790-00

PATIENT
  Age: 46 Year
  Sex: Female
  Weight: 95 kg

DRUGS (6)
  1. DIACEREINE [Concomitant]
     Indication: SPINAL OSTEOARTHRITIS
     Route: 048
     Dates: start: 2012
  2. HUMIRA [Suspect]
     Active Substance: ADALIMUMAB
     Indication: PSORIATIC ARTHROPATHY
     Route: 058
     Dates: start: 20160419
  3. AMITRIPTYLINE [Concomitant]
     Active Substance: AMITRIPTYLINE
     Indication: SPINAL OSTEOARTHRITIS
     Route: 048
     Dates: start: 2012
  4. DEFLAZACORT [Concomitant]
     Active Substance: DEFLAZACORT
     Indication: SPINAL OSTEOARTHRITIS
     Route: 048
     Dates: start: 2012
  5. METHOTREXATE. [Concomitant]
     Active Substance: METHOTREXATE
     Indication: PSORIATIC ARTHROPATHY
     Route: 048
     Dates: start: 201511
  6. MELOXICAM. [Concomitant]
     Active Substance: MELOXICAM
     Indication: SPINAL OSTEOARTHRITIS
     Route: 048
     Dates: start: 2012

REACTIONS (10)
  - Paraesthesia [Recovered/Resolved]
  - Memory impairment [Recovered/Resolved]
  - Tremor [Recovered/Resolved]
  - Ageusia [Recovered/Resolved]
  - Aphasia [Recovered/Resolved]
  - Confusional state [Recovered/Resolved]
  - Somnolence [Recovered/Resolved]
  - Muscle spasms [Recovered/Resolved]
  - Vision blurred [Recovered/Resolved]
  - Anosmia [Recovered/Resolved]

NARRATIVE: CASE EVENT DATE: 201606
